FAERS Safety Report 9664543 (Version 1)
Quarter: 2013Q4

REPORT INFORMATION
  Report Type: Spontaneous
  Country: US (occurrence: None)
  Receive Date: 20131030
  Receipt Date: 20131030
  Transmission Date: 20140711
  Serious: No
  Sender: FDA-Public Use
  Company Number: None

PATIENT
  Age: 33 Year
  Sex: Female

DRUGS (1)
  1. DROSPIRENONE-ETHINYL ESTRADIOL [Suspect]
     Indication: CONTRACEPTION
     Dosage: 3.0-.02 PER TAB?TALE 1 TAB DAILY

REACTIONS (4)
  - Depressed mood [None]
  - Anger [None]
  - Elevated mood [None]
  - Product substitution issue [None]
